FAERS Safety Report 11724384 (Version 7)
Quarter: 2016Q2

REPORT INFORMATION
  Report Type: Report from Study
  Country: US (occurrence: US)
  Receive Date: 20151111
  Receipt Date: 20160505
  Transmission Date: 20160815
  Serious: Yes (Hospitalization)
  Sender: FDA-Public Use
  Company Number: US-ACTELION-A-US2015-126144

PATIENT
  Age: 68 Year
  Sex: Female

DRUGS (6)
  1. TREPROSTINIL DIOLAMIN [Suspect]
     Active Substance: TREPROSTINIL DIOLAMINE
     Dosage: 2.125 MG, TID
     Route: 065
  2. UPTRAVI [Concomitant]
     Active Substance: SELEXIPAG
     Indication: PULMONARY ARTERIAL HYPERTENSION
     Route: 048
  3. TYVASO [Concomitant]
     Active Substance: TREPROSTINIL
  4. TREPROSTINIL DIOLAMIN [Suspect]
     Active Substance: TREPROSTINIL DIOLAMINE
     Indication: PRODUCT USED FOR UNKNOWN INDICATION
     Dosage: 2.5 MG, TID
     Route: 065
  5. COUMADIN [Concomitant]
     Active Substance: WARFARIN SODIUM
  6. TRACLEER [Suspect]
     Active Substance: BOSENTAN
     Indication: PULMONARY ARTERIAL HYPERTENSION
     Dosage: 125 MG, UNK
     Route: 048
     Dates: start: 20040319

REACTIONS (33)
  - International normalised ratio decreased [Unknown]
  - Fall [Unknown]
  - Headache [Unknown]
  - Palpitations [Unknown]
  - Halo vision [Unknown]
  - International normalised ratio abnormal [Unknown]
  - Euphoric mood [Unknown]
  - Decubitus ulcer [Unknown]
  - Panic attack [Unknown]
  - Flatulence [Unknown]
  - Dyspnoea [Unknown]
  - Flushing [Unknown]
  - Hot flush [Unknown]
  - Urinary incontinence [Unknown]
  - Ankle fracture [Unknown]
  - Depressed mood [Unknown]
  - Blood pressure increased [Unknown]
  - Anxiety [Unknown]
  - Lower limb fracture [Unknown]
  - Pulmonary hypertension [Unknown]
  - Insomnia [Unknown]
  - Cough [Unknown]
  - Diarrhoea [Unknown]
  - Malaise [Unknown]
  - Urinary tract infection [Unknown]
  - Oxygen saturation decreased [Unknown]
  - Anal incontinence [Unknown]
  - Urine output increased [Unknown]
  - Pain in jaw [Unknown]
  - Throat irritation [Unknown]
  - Nausea [Unknown]
  - Gastrointestinal disorder [Unknown]
  - Brain natriuretic peptide increased [Unknown]
